FAERS Safety Report 24009453 (Version 1)
Quarter: 2024Q2

REPORT INFORMATION
  Report Type: Spontaneous
  Country: IT (occurrence: IT)
  Receive Date: 20240625
  Receipt Date: 20240625
  Transmission Date: 20240716
  Serious: Yes (Hospitalization, Other)
  Sender: FDA-Public Use
  Company Number: IT-SUN PHARMACEUTICAL INDUSTRIES LTD-2024RR-452681

PATIENT
  Sex: Male

DRUGS (6)
  1. ODOMZO [Suspect]
     Active Substance: SONIDEGIB
     Indication: Product used for unknown indication
     Dosage: 200 MILLIGRAM, DAILY
     Route: 065
     Dates: start: 20230317
  2. FUROSEMIDE [Concomitant]
     Active Substance: FUROSEMIDE
     Indication: Product used for unknown indication
     Dosage: 25 MILLIGRAM, 1 TABLET IN THE MORNING
     Route: 065
  3. METOPROLOL [Concomitant]
     Active Substance: METOPROLOL
     Indication: Product used for unknown indication
     Dosage: 100 MILLIGRAM, HALF A TABLET IN THE MORNING AND EVENING
     Route: 065
  4. TAMSULOSIN [Concomitant]
     Active Substance: TAMSULOSIN
     Indication: Product used for unknown indication
     Dosage: 4 MILLIGRAM, 1 TABLET IN THE MORNING
     Route: 065
  5. Forsiga [Concomitant]
     Indication: Product used for unknown indication
     Dosage: 10 MILLIGRAM, 1 TABLET AT 12 PM
     Route: 065
  6. Carelto [Concomitant]
     Indication: Product used for unknown indication
     Dosage: 15 MILLIGRAM, AT 1 PM, 1 TABLET
     Route: 065

REACTIONS (2)
  - Chromaturia [Recovered/Resolved]
  - Urinary tract infection [Recovered/Resolved]

NARRATIVE: CASE EVENT DATE: 20231229
